FAERS Safety Report 15310231 (Version 1)
Quarter: 2018Q3

REPORT INFORMATION
  Report Type: Spontaneous
  Country: US (occurrence: US)
  Receive Date: 20180813
  Receipt Date: 20180813
  Transmission Date: 20181010
  Serious: No
  Sender: FDA-Public Use
  Company Number: None

PATIENT
  Sex: Female
  Weight: 63.5 kg

DRUGS (2)
  1. VALSARTAN HCTZ [Suspect]
     Active Substance: HYDROCHLOROTHIAZIDE\VALSARTAN
  2. VALSARTAN HCTZ [Suspect]
     Active Substance: HYDROCHLOROTHIAZIDE\VALSARTAN
     Indication: HYPERTENSION
     Dosage: ?          QUANTITY:1 DF DOSAGE FORM;?
     Route: 048
     Dates: end: 20180725

REACTIONS (1)
  - Product use issue [None]
